FAERS Safety Report 16478236 (Version 1)
Quarter: 2019Q2

REPORT INFORMATION
  Report Type: Spontaneous
  Country: US (occurrence: US)
  Receive Date: 20190626
  Receipt Date: 20190626
  Transmission Date: 20190711
  Serious: No
  Sender: FDA-Public Use
  Company Number: US-DRREDDYS-USA/USA/19/0111236

PATIENT
  Sex: Female
  Weight: 78.75 kg

DRUGS (2)
  1. CYMBALTA [Concomitant]
     Active Substance: DULOXETINE HYDROCHLORIDE
     Indication: AFFECTIVE DISORDER
  2. NICOTINE. [Suspect]
     Active Substance: NICOTINE
     Indication: EX-TOBACCO USER
     Route: 062
     Dates: start: 20181101

REACTIONS (6)
  - Nicotine dependence [Not Recovered/Not Resolved]
  - Product use issue [Unknown]
  - Treatment noncompliance [Not Recovered/Not Resolved]
  - Underdose [Not Recovered/Not Resolved]
  - Inappropriate schedule of product administration [Not Recovered/Not Resolved]
  - Product adhesion issue [Unknown]
